FAERS Safety Report 4558008-1 (Version None)
Quarter: 2005Q1

REPORT INFORMATION
  Report Type: 
  Country: None (occurrence: None)
  Receive Date: 20050121
  Receipt Date: 20040427
  Transmission Date: 20050727
  Serious: No
  Sender: FDA-Public Use
  Company Number: US-BRISTOL-MYERS SQUIBB COMPANY-12578670

PATIENT
  Age: 15 Year
  Sex: Female

DRUGS (2)
  1. SERZONE [Suspect]
     Indication: MAJOR DEPRESSION
     Route: 048
     Dates: start: 20000401, end: 20010701
  2. DEPAKOTE [Concomitant]

REACTIONS (2)
  - ABDOMINAL DISCOMFORT [None]
  - NAUSEA [None]
